FAERS Safety Report 25943373 (Version 1)
Quarter: 2025Q4

REPORT INFORMATION
  Report Type: Spontaneous
  Country: EU (occurrence: EU)
  Receive Date: 20251021
  Receipt Date: 20251021
  Transmission Date: 20260118
  Serious: Yes (Death, Other)
  Sender: AMGEN
  Company Number: EU-AMGEN-ITASP2025205027

PATIENT

DRUGS (1)
  1. TRASTUZUMAB [Suspect]
     Active Substance: TRASTUZUMAB
     Indication: HER2 mutant non-small cell lung cancer
     Dosage: UNK
     Route: 065

REACTIONS (12)
  - HER2 mutant non-small cell lung cancer [Fatal]
  - Death [Fatal]
  - Non-small cell lung cancer recurrent [Unknown]
  - Metastases to bone [Unknown]
  - Metastases to central nervous system [Unknown]
  - Metastases to liver [Unknown]
  - Metastases to adrenals [Unknown]
  - Chylothorax [Unknown]
  - Anaemia postoperative [Unknown]
  - Infectious pleural effusion [Unknown]
  - Pulmonary air leakage [Unknown]
  - Off label use [Unknown]
